FAERS Safety Report 9053858 (Version 3)
Quarter: 2013Q2

REPORT INFORMATION
  Report Type: Spontaneous
  Country: US (occurrence: US)
  Receive Date: 20130207
  Receipt Date: 20130520
  Transmission Date: 20140414
  Serious: Yes (Life-Threatening, Hospitalization, Other)
  Sender: FDA-Public Use
  Company Number: US-B.I. PHARMACEUTICALS,INC./RIDGEFIELD-2013-BI-03058BP

PATIENT
  Age: 69 Year
  Sex: Male
  Weight: 75.5 kg

DRUGS (15)
  1. PRADAXA [Suspect]
     Indication: ATRIAL FIBRILLATION
     Route: 048
     Dates: start: 20120123, end: 20120312
  2. PRADAXA [Suspect]
     Indication: FLUID OVERLOAD
  3. JAKAFI [Suspect]
     Indication: MYELOFIBROSIS
     Dosage: 10 MG
     Route: 048
     Dates: start: 201112
  4. JAKAFI [Suspect]
     Dosage: 10 MG
     Route: 048
     Dates: start: 201201, end: 2012
  5. JAKAFI [Suspect]
     Route: 048
     Dates: start: 2012, end: 20120224
  6. ZOSYN [Suspect]
     Indication: ANTIBIOTIC PROPHYLAXIS
     Dates: start: 20120226
  7. PREVACID [Concomitant]
  8. NORVASC [Concomitant]
  9. PRINIVIL [Concomitant]
  10. TOPROL XL [Concomitant]
  11. ZYLOPRIM [Concomitant]
  12. PROSCAR [Concomitant]
  13. FLOMAX [Concomitant]
  14. ASPIRIN [Concomitant]
  15. ZESTRIL [Concomitant]

REACTIONS (7)
  - Cardiac tamponade [Recovered/Resolved]
  - Pericardial haemorrhage [Unknown]
  - Acute respiratory failure [Unknown]
  - Pulmonary oedema [Unknown]
  - Thrombocytopenia [Unknown]
  - Leukocytosis [Unknown]
  - Cardiac failure congestive [Unknown]
